FAERS Safety Report 5473838-X (Version None)
Quarter: 2007Q4

REPORT INFORMATION
  Report Type: 
  Country: None (occurrence: None)
  Receive Date: 20071001
  Receipt Date: 20070919
  Transmission Date: 20080405
  Serious: Yes (Other)
  Sender: FDA-Public Use
  Company Number: US-PFIZER INC-2007078727

PATIENT
  Age: 47 Year
  Sex: Female

DRUGS (8)
  1. CLINDAMYCIN HYDROCHLORIDE [Suspect]
     Indication: TOOTH INFECTION
     Route: 048
  2. CLINDAMYCIN PHOSPHATE [Suspect]
     Indication: TOOTH INFECTION
     Route: 042
  3. METOPROLOL [Concomitant]
  4. ASPIRIN [Concomitant]
  5. SIMVASTATIN [Concomitant]
  6. NIFEDIPINE [Concomitant]
  7. INSULIN [Concomitant]
  8. VITAMINS [Concomitant]

REACTIONS (1)
  - ACUTE FEBRILE NEUTROPHILIC DERMATOSIS [None]
